FAERS Safety Report 10365994 (Version 1)
Quarter: 2014Q3

REPORT INFORMATION
  Report Type: Spontaneous
  Country: RS (occurrence: RS)
  Receive Date: 20140806
  Receipt Date: 20140806
  Transmission Date: 20150326
  Serious: Yes (Hospitalization)
  Sender: FDA-Public Use
  Company Number: RS-ACTAVIS-2014-16747

PATIENT
  Age: 52 Year
  Sex: Male
  Weight: 86 kg

DRUGS (4)
  1. RANISAN                            /00550802/ [Concomitant]
     Indication: PROPHYLACTIC CHEMOTHERAPY
     Dosage: 50 MG, TOTAL
     Route: 042
     Dates: start: 20140625, end: 20140625
  2. RASETRON [Concomitant]
     Indication: PROPHYLACTIC CHEMOTHERAPY
     Dosage: 2 MG, TOTAL
     Route: 042
     Dates: start: 20140625, end: 20140625
  3. SINOXAL [Suspect]
     Active Substance: OXALIPLATIN
     Indication: RECTOSIGMOID CANCER
     Dosage: 85 MG/M2 DAILY
     Route: 042
     Dates: start: 20140625, end: 20140625
  4. DEXASON                            /00016001/ [Concomitant]
     Indication: PROPHYLACTIC CHEMOTHERAPY
     Dosage: 16 MG, TOTAL
     Route: 042
     Dates: start: 20140625, end: 20140625

REACTIONS (6)
  - Pruritus [Recovered/Resolved]
  - Hypoaesthesia [Recovered/Resolved]
  - Hypersensitivity [Recovered/Resolved]
  - Erythema [Recovered/Resolved]
  - Urticaria [Recovered/Resolved]
  - Oedema [Recovered/Resolved]

NARRATIVE: CASE EVENT DATE: 20140625
